FAERS Safety Report 18800147 (Version 1)
Quarter: 2021Q1

REPORT INFORMATION
  Report Type: Spontaneous
  Country: US (occurrence: US)
  Receive Date: 20210128
  Receipt Date: 20210128
  Transmission Date: 20210419
  Serious: Yes (Hospitalization, Other)
  Sender: FDA-Public Use
  Company Number: US-GRANULES-US-2021GRALIT00056

PATIENT
  Age: 28 Year
  Sex: Female

DRUGS (15)
  1. PALIPERIDONE. [Concomitant]
     Active Substance: PALIPERIDONE
     Indication: PRODUCT USED FOR UNKNOWN INDICATION
     Route: 065
  2. QUETIAPINE. [Concomitant]
     Active Substance: QUETIAPINE
     Indication: PRODUCT USED FOR UNKNOWN INDICATION
     Route: 065
  3. SERTRALINE [Concomitant]
     Active Substance: SERTRALINE HYDROCHLORIDE
     Indication: PRODUCT USED FOR UNKNOWN INDICATION
     Route: 065
  4. UBIDECARENONE. [Interacting]
     Active Substance: UBIDECARENONE
     Indication: PRODUCT USED FOR UNKNOWN INDICATION
     Route: 065
  5. VALPROATE SEMISODIUM [Suspect]
     Active Substance: DIVALPROEX SODIUM
     Indication: PRODUCT USED FOR UNKNOWN INDICATION
     Route: 065
  6. LITHIUM. [Concomitant]
     Active Substance: LITHIUM
     Indication: PRODUCT USED FOR UNKNOWN INDICATION
     Route: 065
  7. CARNITINE [Interacting]
     Active Substance: CARNITINE
     Indication: PRODUCT USED FOR UNKNOWN INDICATION
     Route: 065
  8. CHLORPROMAZINE. [Suspect]
     Active Substance: CHLORPROMAZINE
     Indication: PRODUCT USED FOR UNKNOWN INDICATION
     Route: 065
  9. CARBAMAZEPINE. [Concomitant]
     Active Substance: CARBAMAZEPINE
     Indication: PRODUCT USED FOR UNKNOWN INDICATION
     Route: 065
  10. METFORMIN [Suspect]
     Active Substance: METFORMIN HYDROCHLORIDE
     Indication: PRODUCT USED FOR UNKNOWN INDICATION
     Route: 065
  11. HALOPERIDOL. [Concomitant]
     Active Substance: HALOPERIDOL
     Indication: PRODUCT USED FOR UNKNOWN INDICATION
     Route: 065
  12. DIAZEPAM. [Concomitant]
     Active Substance: DIAZEPAM
     Indication: PRODUCT USED FOR UNKNOWN INDICATION
     Route: 065
  13. CLOZAPINE. [Interacting]
     Active Substance: CLOZAPINE
     Indication: PRODUCT USED FOR UNKNOWN INDICATION
     Route: 065
  14. VITAMIN B COMPLEX [Interacting]
     Active Substance: CYANOCOBALAMIN\DEXPANTHENOL\NIACINAMIDE\PYRIDOXINE HYDROCHLORIDE\RIBOFLAVIN 5^-PHOSPHATE SODIUM\THIAMINE HYDROCHLORIDE\VITAMIN B COMPLEX
     Indication: PRODUCT USED FOR UNKNOWN INDICATION
     Route: 065
  15. TOCOPHEROL [Interacting]
     Active Substance: TOCOPHEROL
     Indication: PRODUCT USED FOR UNKNOWN INDICATION
     Route: 065

REACTIONS (14)
  - Anger [Recovered/Resolved]
  - Agitation [Recovered/Resolved]
  - Abnormal behaviour [Recovered/Resolved]
  - Disorganised speech [Recovered/Resolved]
  - Hallucinations, mixed [Recovered/Resolved]
  - Affect lability [Recovered/Resolved]
  - Drug interaction [Unknown]
  - Blood citric acid increased [Recovered/Resolved]
  - Lactate pyruvate ratio increased [Recovered/Resolved]
  - Epileptic encephalopathy [Recovered/Resolved]
  - Ammonia increased [Recovered/Resolved]
  - Mitochondrial cytopathy [Recovered/Resolved]
  - Depression [Recovered/Resolved]
  - Irritability [Recovered/Resolved]
